FAERS Safety Report 4725581-X (Version None)
Quarter: 2005Q3

REPORT INFORMATION
  Report Type: 
  Country: None (occurrence: None)
  Receive Date: 20050722
  Receipt Date: 20050722
  Transmission Date: 20060218
  Serious: Yes (Hospitalization)
  Sender: FDA-Public Use
  Company Number: None

PATIENT
  Age: 2 Month
  Sex: Male

DRUGS (2)
  1. AMPICILLIN [Suspect]
     Indication: ENTEROCOCCAL INFECTION
  2. AMPICILLIN [Suspect]
     Indication: PSEUDOMONAS INFECTION

REACTIONS (1)
  - NEUTROPHIL COUNT DECREASED [None]
